FAERS Safety Report 6569447-1 (Version None)
Quarter: 2010Q1

REPORT INFORMATION
  Report Type: 
  Country: None (occurrence: None)
  Receive Date: 20100204
  Receipt Date: 20100201
  Transmission Date: 20100710
  Serious: Yes (Death)
  Sender: FDA-Public Use
  Company Number: JP-BAYER-201010031BYL

PATIENT
  Age: 69 Year
  Sex: Male

DRUGS (14)
  1. NEXAVAR [Suspect]
     Indication: HEPATIC NEOPLASM MALIGNANT
     Dosage: TOTAL DAILY DOSE: 800 MG  UNIT DOSE: 200 MG
     Route: 048
     Dates: start: 20091207, end: 20091224
  2. PROMAC [Concomitant]
     Indication: GASTRIC ULCER
     Dosage: TOTAL DAILY DOSE: 150 MG  UNIT DOSE: 75 MG
     Route: 048
  3. URSO 250 [Concomitant]
     Indication: HEPATIC FUNCTION ABNORMAL
     Dosage: TOTAL DAILY DOSE: 600 MG  UNIT DOSE: 100 MG
     Route: 048
  4. JUVELA [Concomitant]
     Indication: VITAMIN SUPPLEMENTATION
     Dosage: TOTAL DAILY DOSE: 150 MG  UNIT DOSE: 50 MG
     Route: 048
  5. CINAL [Concomitant]
     Indication: VITAMIN SUPPLEMENTATION
     Dosage: TOTAL DAILY DOSE: 3 G  UNIT DOSE: 20 %
     Route: 048
  6. LASIX [Concomitant]
     Indication: OEDEMA
     Dosage: TOTAL DAILY DOSE: 20 MG  UNIT DOSE: 20 MG
     Route: 048
  7. ALDACTONE [Concomitant]
     Indication: OEDEMA
     Dosage: TOTAL DAILY DOSE: 25 MG  UNIT DOSE: 25 MG
     Route: 048
  8. TAKEPRON [Concomitant]
     Indication: GASTRIC ULCER
     Dosage: TOTAL DAILY DOSE: 15 MG  UNIT DOSE: 15 MG
     Route: 048
  9. FASTIC [Concomitant]
     Indication: DIABETES MELLITUS
     Dosage: TOTAL DAILY DOSE: 90 MG  UNIT DOSE: 30 MG
     Route: 048
  10. MARZULENE ES [Concomitant]
     Indication: GASTRIC ULCER
     Dosage: TOTAL DAILY DOSE: 3 DF
     Route: 048
  11. METHYCOBAL [Concomitant]
     Indication: VITAMIN SUPPLEMENTATION
     Dosage: TOTAL DAILY DOSE: 1500 ?G  UNIT DOSE: 500 ?G
     Route: 048
  12. ADETPHOS [Concomitant]
     Indication: GASTROINTESTINAL DISORDER THERAPY
     Dosage: TOTAL DAILY DOSE: 3 G  UNIT DOSE: 10 %
     Route: 048
  13. CARNACULIN [Concomitant]
     Indication: CARDIOVASCULAR DISORDER
     Dosage: TOTAL DAILY DOSE: 150 IU  UNIT DOSE: 50 IU
     Route: 048
  14. LIVACT [Concomitant]
     Route: 048

REACTIONS (2)
  - HEPATIC FAILURE [None]
  - HYPERAMMONAEMIA [None]
